FAERS Safety Report 7630053-9 (Version None)
Quarter: 2011Q3

REPORT INFORMATION
  Report Type: 
  Country: None (occurrence: None)
  Receive Date: 20110714
  Receipt Date: 20110629
  Transmission Date: 20111222
  Serious: Yes (Hospitalization)
  Sender: FDA-Public Use
  Company Number: 2011SP031793

PATIENT
  Age: 54 Year
  Sex: Female

DRUGS (2)
  1. REMERON [Suspect]
     Indication: DEPRESSION
     Dosage: PO
  2. TRAZODONE HCL [Suspect]
     Indication: DEPRESSION

REACTIONS (5)
  - SENSORY DISTURBANCE [None]
  - BLOOD PRESSURE INCREASED [None]
  - HEMIPARESIS [None]
  - HEADACHE [None]
  - CEREBRAL VASOCONSTRICTION [None]
